FAERS Safety Report 9477334 (Version 2)
Quarter: 2013Q4

REPORT INFORMATION
  Report Type: Spontaneous
  Country: US (occurrence: US)
  Receive Date: 20130826
  Receipt Date: 20131014
  Transmission Date: 20140711
  Serious: Yes (Other)
  Sender: FDA-Public Use
  Company Number: US-ALLERGAN-1312735US

PATIENT
  Age: 69 Year
  Sex: Female

DRUGS (11)
  1. RESTASIS [Suspect]
     Indication: DRY EYE
     Dosage: 2 DROPS IN EACH EYE TWICE DAILY
     Route: 047
     Dates: end: 20130820
  2. MAXZIDE [Concomitant]
     Indication: PRODUCT USED FOR UNKNOWN INDICATION
     Dosage: UNK
  3. FOLIC ACID [Concomitant]
     Indication: PRODUCT USED FOR UNKNOWN INDICATION
     Dosage: UNK
  4. CALCIUM [Concomitant]
     Indication: PRODUCT USED FOR UNKNOWN INDICATION
     Dosage: UNK
  5. VALTREX [Concomitant]
     Indication: PRODUCT USED FOR UNKNOWN INDICATION
     Dosage: UNK
  6. CELEBREX [Concomitant]
     Indication: BACK PAIN
     Dosage: UNK
     Dates: start: 201212
  7. VITAMIN D [Concomitant]
     Indication: VITAMIN D DEFICIENCY
     Dosage: 50000 UNITS, Q WEEK
     Route: 048
  8. MVI [Concomitant]
     Indication: SUPPLEMENTATION THERAPY
     Dosage: UNK
  9. DILAUDID [Concomitant]
     Indication: BACK PAIN
     Dosage: 6 MG, QD
  10. FENTANYL [Concomitant]
     Indication: BACK PAIN
     Dosage: 50 ?G, UNK
     Route: 062
  11. KREON [Concomitant]
     Indication: PRODUCT USED FOR UNKNOWN INDICATION
     Dosage: UNK

REACTIONS (4)
  - Pancreatic carcinoma [Unknown]
  - Lung disorder [Not Recovered/Not Resolved]
  - Intentional drug misuse [Recovered/Resolved]
  - Foreign body sensation in eyes [Not Recovered/Not Resolved]
